FAERS Safety Report 19450476 (Version 2)
Quarter: 2022Q2

REPORT INFORMATION
  Report Type: Spontaneous
  Country: BR (occurrence: BR)
  Receive Date: 20210622
  Receipt Date: 20220628
  Transmission Date: 20220721
  Serious: Yes (Hospitalization)
  Sender: FDA-Public Use
  Company Number: BR-GLAXOSMITHKLINE-BR2019GSK070004

PATIENT

DRUGS (2)
  1. NUCALA [Suspect]
     Active Substance: MEPOLIZUMAB
     Indication: Asthma
     Dosage: 100 MG, Z MONTHLY
     Route: 058
     Dates: start: 20190313
  2. COVID-19 VACCINE NOS [Suspect]
     Active Substance: COVID-19 VACCINE NOS
     Indication: Product used for unknown indication
     Dosage: UNK

REACTIONS (20)
  - COVID-19 [Unknown]
  - Blood pressure fluctuation [Unknown]
  - Dizziness [Unknown]
  - Nausea [Unknown]
  - Visual impairment [Unknown]
  - Malaise [Unknown]
  - Asthenia [Unknown]
  - Hyperhidrosis [Unknown]
  - Pyrexia [Unknown]
  - Chest pain [Unknown]
  - Arthralgia [Unknown]
  - Cold sweat [Unknown]
  - Polydipsia [Unknown]
  - Headache [Unknown]
  - Chest discomfort [Unknown]
  - Hypertension [Unknown]
  - Myalgia [Unknown]
  - Dengue fever [Unknown]
  - Therapy interrupted [Unknown]
  - Social problem [Unknown]

NARRATIVE: CASE EVENT DATE: 20190512
